FAERS Safety Report 18637935 (Version 2)
Quarter: 2021Q2

REPORT INFORMATION
  Report Type: Spontaneous
  Country: FR (occurrence: FR)
  Receive Date: 20201218
  Receipt Date: 20210428
  Transmission Date: 20210717
  Serious: Yes (Other)
  Sender: FDA-Public Use
  Company Number: FR-009507513-2012FRA006236

PATIENT
  Age: 71 Year
  Sex: Female

DRUGS (10)
  1. CEFTRIAXONE. [Concomitant]
     Active Substance: CEFTRIAXONE
     Indication: DRUG PROVOCATION TEST
     Dosage: UNK
  2. CEFPODOXIME PROXETIL. [Concomitant]
     Active Substance: CEFPODOXIME PROXETIL
     Indication: DRUG PROVOCATION TEST
     Dosage: UNK
  3. PIPERACILLIN AND TAZOBACTAM [Suspect]
     Active Substance: PIPERACILLIN SODIUM\TAZOBACTAM SODIUM
     Indication: SKIN TEST
     Dosage: UNK
  4. ERTAPENEM SODIUM [Concomitant]
     Active Substance: ERTAPENEM SODIUM
     Indication: SKIN TEST
     Dosage: UNK, AT A 20 MG/ML CONCENTRATION
  5. AMOXICILLIN. [Suspect]
     Active Substance: AMOXICILLIN
     Indication: SKIN TEST
     Dosage: UNK
  6. PENICILLIN V [Suspect]
     Active Substance: PENICILLIN V
     Indication: SKIN TEST
  7. MEROPENEM. [Concomitant]
     Active Substance: MEROPENEM
     Indication: SKIN TEST
  8. IMIPENEM AND CILASTATIN [Suspect]
     Active Substance: CILASTATIN SODIUM\IMIPENEM
     Indication: DRUG PROVOCATION TEST
  9. IMIPENEM AND CILASTATIN [Suspect]
     Active Substance: CILASTATIN SODIUM\IMIPENEM
     Indication: SKIN TEST
     Dosage: UNK
  10. PENICILLIN G [Suspect]
     Active Substance: PENICILLIN G
     Indication: SKIN TEST
     Dosage: UNK

REACTIONS (3)
  - Eosinophilia [Unknown]
  - Cross sensitivity reaction [Unknown]
  - Rash maculo-papular [Unknown]
